FAERS Safety Report 8232685-6 (Version None)
Quarter: 2012Q1

REPORT INFORMATION
  Report Type: 
  Country: None (occurrence: None)
  Receive Date: 20120323
  Receipt Date: 20120319
  Transmission Date: 20120608
  Serious: Yes (Hospitalization)
  Sender: FDA-Public Use
  Company Number: PHHY2012FR020599

PATIENT
  Age: 74 Year
  Sex: Female
  Weight: 62 kg

DRUGS (3)
  1. ZOLEDRONOC ACID [Suspect]
     Indication: OSTEOPOROSIS
     Route: 042
  2. LUDIOMIL [Concomitant]
     Dates: start: 20110101
  3. PRAZEPAM [Concomitant]
     Dosage: UNK
     Dates: start: 20110101

REACTIONS (1)
  - MENTAL DISORDER [None]
